FAERS Safety Report 25651535 (Version 6)
Quarter: 2025Q4

REPORT INFORMATION
  Report Type: Spontaneous
  Country: EU (occurrence: EU)
  Receive Date: 20250806
  Receipt Date: 20251120
  Transmission Date: 20260119
  Serious: Yes (Hospitalization)
  Sender: NOVARTIS
  Company Number: EU-002147023-NVSC2025GR122599

PATIENT
  Sex: Male
  Weight: 2.64 kg

DRUGS (2)
  1. KESIMPTA [Suspect]
     Active Substance: OFATUMUMAB
     Indication: Foetal exposure during pregnancy
     Dosage: MATERNAL EXPOSURE DURING PREGNANCY: 20 MG, QMO
     Route: 064
     Dates: start: 20221128, end: 20231101
  2. KESIMPTA [Suspect]
     Active Substance: OFATUMUMAB
     Dosage: MATERNAL EXPOSURE DURING PREGNANCY: UNK 20MG/0,4 ML (50MG/ML)
     Route: 064

REACTIONS (5)
  - Inguinal hernia [Recovered/Resolved]
  - Plagiocephaly [Recovered/Resolved]
  - Torticollis [Recovered/Resolved]
  - Cough [Recovered/Resolved]
  - Foetal exposure during pregnancy [Unknown]

NARRATIVE: CASE EVENT DATE: 20240715
